FAERS Safety Report 7603912-0 (Version None)
Quarter: 2011Q3

REPORT INFORMATION
  Report Type: 
  Country: None (occurrence: None)
  Receive Date: 20110712
  Receipt Date: 20110630
  Transmission Date: 20111222
  Serious: Yes (Death)
  Sender: FDA-Public Use
  Company Number: JP-ROCHE-713515

PATIENT
  Sex: Female
  Weight: 37 kg

DRUGS (6)
  1. AVASTIN [Suspect]
     Indication: RECTAL CANCER METASTATIC
     Dosage: DISCONTINUED
     Route: 041
     Dates: start: 20100621, end: 20100621
  2. FLUOROURACIL [Concomitant]
     Route: 041
     Dates: start: 20100318, end: 20100623
  3. ADALAT CC [Concomitant]
     Route: 048
  4. ISOVORIN [Concomitant]
     Route: 041
     Dates: start: 20100318, end: 20100623
  5. OXALIPLATIN [Concomitant]
     Route: 041
     Dates: start: 20100318, end: 20100621
  6. CANDESARTAN CILEXETIL [Concomitant]
     Route: 048

REACTIONS (4)
  - PNEUMONIA [None]
  - AORTIC DISSECTION [None]
  - AORTIC ANEURYSM RUPTURE [None]
  - TRACHEAL FISTULA [None]
